FAERS Safety Report 5141383-7 (Version None)
Quarter: 2006Q4

REPORT INFORMATION
  Report Type: 
  Country: None (occurrence: None)
  Receive Date: 20061101
  Receipt Date: 20061031
  Transmission Date: 20070319
  Serious: Yes (Other)
  Sender: FDA-Public Use
  Company Number: US-GLAXOSMITHKLINE-A0625573A

PATIENT
  Age: 50 Year
  Sex: Male
  Weight: 104.5 kg

DRUGS (2)
  1. PAXIL CR [Suspect]
     Dosage: 25MG PER DAY
     Route: 048
     Dates: start: 20060301, end: 20061027
  2. NEXIUM [Concomitant]

REACTIONS (11)
  - DIZZINESS [None]
  - DRUG WITHDRAWAL SYNDROME [None]
  - HEADACHE [None]
  - HYPERACUSIS [None]
  - NERVOUSNESS [None]
  - SENSORY DISTURBANCE [None]
  - SHOCK [None]
  - SYNCOPE [None]
  - SYNCOPE VASOVAGAL [None]
  - TINNITUS [None]
  - WRONG TECHNIQUE IN DRUG USAGE PROCESS [None]
